FAERS Safety Report 15767264 (Version 2)
Quarter: 2018Q4

REPORT INFORMATION
  Report Type: Spontaneous
  Country: IT (occurrence: IT)
  Receive Date: 20181227
  Receipt Date: 20181231
  Transmission Date: 20190205
  Serious: Yes (Life-Threatening, Other)
  Sender: FDA-Public Use
  Company Number: IT-009507513-1812ITA009831

PATIENT
  Age: 48 Year
  Sex: Female
  Weight: 60 kg

DRUGS (3)
  1. BRIDION [Suspect]
     Active Substance: SUGAMMADEX
     Indication: NEUROMUSCULAR BLOCKADE REVERSAL
     Route: 042
     Dates: start: 20181207, end: 20181207
  2. MORPHINE [Suspect]
     Active Substance: MORPHINE
     Indication: NEUROMUSCULAR BLOCKADE REVERSAL
     Route: 042
  3. ACETAMINOPHEN. [Suspect]
     Active Substance: ACETAMINOPHEN
     Indication: NEUROMUSCULAR BLOCKADE REVERSAL
     Route: 042

REACTIONS (5)
  - Abdominal pain lower [Recovering/Resolving]
  - Rash maculo-papular [Recovering/Resolving]
  - Anaphylactic shock [Recovering/Resolving]
  - Hypotension [Recovering/Resolving]
  - Delayed recovery from anaesthesia [Recovering/Resolving]

NARRATIVE: CASE EVENT DATE: 20181207
